FAERS Safety Report 5929281-X (Version None)
Quarter: 2008Q4

REPORT INFORMATION
  Report Type: 
  Country: None (occurrence: None)
  Receive Date: 20081020
  Receipt Date: 20081007
  Transmission Date: 20090506
  Serious: Yes (Other)
  Sender: FDA-Public Use
  Company Number: 1000001349

PATIENT
  Age: 86 Year
  Sex: Female

DRUGS (2)
  1. MEMANTINE (MEMANTINE HYDROCHLORIDE) (20 MILLIGRAM, TABLETS) [Suspect]
     Indication: DEMENTIA ALZHEIMER'S TYPE
     Dosage: 20 MG (20 MG, 1 IN 1 D), ORAL
     Route: 048
  2. TEGRETOL [Concomitant]

REACTIONS (1)
  - EPILEPSY [None]
